FAERS Safety Report 19775203 (Version 1)
Quarter: 2021Q3

REPORT INFORMATION
  Report Type: Spontaneous
  Country: US (occurrence: US)
  Receive Date: 20210901
  Receipt Date: 20210901
  Transmission Date: 20211014
  Serious: Yes (Other)
  Sender: FDA-Public Use
  Company Number: US-ASTRAZENECA-2021A699037

PATIENT
  Age: 81 Year
  Sex: Female

DRUGS (21)
  1. OMEPRAZOLE. [Suspect]
     Active Substance: OMEPRAZOLE
     Indication: GASTROOESOPHAGEAL REFLUX DISEASE
     Route: 065
     Dates: end: 2016
  2. PRAVASTATIN. [Concomitant]
     Active Substance: PRAVASTATIN
     Indication: BLOOD CHOLESTEROL ABNORMAL
  3. FAMOTIDINE. [Concomitant]
     Active Substance: FAMOTIDINE
     Dates: start: 2019
  4. GLIPIZIDE. [Concomitant]
     Active Substance: GLIPIZIDE
  5. TEMAZEPAM. [Concomitant]
     Active Substance: TEMAZEPAM
  6. SERTRALINE [Concomitant]
     Active Substance: SERTRALINE HYDROCHLORIDE
  7. FOLIC ACID. [Concomitant]
     Active Substance: FOLIC ACID
  8. PREVACID 24 HR [Suspect]
     Active Substance: LANSOPRAZOLE
     Indication: GASTROOESOPHAGEAL REFLUX DISEASE
     Dosage: SUGGESTED DOSE
     Route: 065
     Dates: start: 2015, end: 2019
  9. AMLODIPINE [Concomitant]
     Active Substance: AMLODIPINE BESYLATE
  10. HYDROCHLOROTHIAZIDE. [Concomitant]
     Active Substance: HYDROCHLOROTHIAZIDE
  11. VITAMIN D3 [Concomitant]
     Active Substance: CHOLECALCIFEROL
  12. CARVEDILOL. [Concomitant]
     Active Substance: CARVEDILOL
  13. ELIQUIS [Concomitant]
     Active Substance: APIXABAN
  14. PREVACID [Suspect]
     Active Substance: LANSOPRAZOLE
     Indication: GASTROOESOPHAGEAL REFLUX DISEASE
     Route: 065
     Dates: start: 2015, end: 2019
  15. NIFEDIPINE. [Concomitant]
     Active Substance: NIFEDIPINE
  16. CARDEZIM [Concomitant]
  17. LISINOPRIL. [Concomitant]
     Active Substance: LISINOPRIL
     Indication: BLOOD PRESSURE ABNORMAL
  18. DICYCLOMINE [Concomitant]
     Active Substance: DICYCLOMINE HYDROCHLORIDE
  19. TRAMADOL. [Concomitant]
     Active Substance: TRAMADOL
  20. PROBIOTIC [Concomitant]
     Active Substance: PROBIOTICS NOS
  21. WARFARIN [Concomitant]
     Active Substance: WARFARIN

REACTIONS (3)
  - End stage renal disease [Unknown]
  - Chronic kidney disease [Not Recovered/Not Resolved]
  - Renal failure [Unknown]

NARRATIVE: CASE EVENT DATE: 2017
